FAERS Safety Report 6599515-X (Version None)
Quarter: 2010Q1

REPORT INFORMATION
  Report Type: 
  Country: None (occurrence: None)
  Receive Date: 20100224
  Receipt Date: 20100214
  Transmission Date: 20100710
  Serious: Yes (Hospitalization)
  Sender: FDA-Public Use
  Company Number: NZ-ROCHE-392846

PATIENT
  Sex: Male

DRUGS (1)
  1. TAMIFLU [Suspect]
     Indication: INFLUENZA
     Dosage: FREQUENCY REPORTED AS DAILY
     Route: 048
     Dates: start: 20000906, end: 20000901

REACTIONS (1)
  - PNEUMONIA [None]
